FAERS Safety Report 6110886-0 (Version None)
Quarter: 2009Q1

REPORT INFORMATION
  Report Type: 
  Country: None (occurrence: None)
  Receive Date: 20090311
  Receipt Date: 20090108
  Transmission Date: 20090719
  Serious: No
  Sender: FDA-Public Use
  Company Number: US-KINGPHARMUSA00001-K200900018

PATIENT
  Sex: Male

DRUGS (3)
  1. ALTACE [Suspect]
     Indication: HYPERTENSION
     Dosage: 10 MG, QD
     Route: 048
  2. DILTIAZEM CD [Concomitant]
     Dosage: 180 MG, UNK
     Route: 048
  3. HYDROCHLOROTHIAZIDE [Concomitant]
     Dosage: 25 MG, UNK
     Route: 048

REACTIONS (2)
  - DIZZINESS [None]
  - VERTIGO [None]
